FAERS Safety Report 6207634-2 (Version None)
Quarter: 2009Q2

REPORT INFORMATION
  Report Type: 
  Country: None (occurrence: None)
  Receive Date: 20090528
  Receipt Date: 20090519
  Transmission Date: 20091009
  Serious: Yes (Hospitalization, Other)
  Sender: FDA-Public Use
  Company Number: ZA-ABBOTT-09P-143-0574501-00

PATIENT
  Sex: Male
  Weight: 61 kg

DRUGS (3)
  1. HUMIRA [Suspect]
     Indication: CROHN'S DISEASE
     Dosage: LOADING DOSE
     Route: 058
     Dates: start: 20090519, end: 20090519
  2. HUMIRA [Suspect]
     Dosage: 2ND PART OF LOADING DOSE
     Route: 058
     Dates: start: 20090520
  3. SULFASALAZINE [Concomitant]
     Indication: CROHN'S DISEASE
     Route: 048

REACTIONS (4)
  - BRADYCARDIA [None]
  - DEHYDRATION [None]
  - HYPOTENSION [None]
  - SYNCOPE [None]
